FAERS Safety Report 10041655 (Version 2)
Quarter: 2014Q2

REPORT INFORMATION
  Report Type: Report from Study
  Country: KR (occurrence: KR)
  Receive Date: 20140327
  Receipt Date: 20140401
  Transmission Date: 20141212
  Serious: Yes (Hospitalization)
  Sender: FDA-Public Use
  Company Number: KR-B.I. PHARMACEUTICALS,INC./RIDGEFIELD-2014-BI-12602BI

PATIENT
  Age: 58 Year
  Sex: Female
  Weight: 67 kg

DRUGS (11)
  1. TRAJENTA DUO [Suspect]
     Indication: TYPE 2 DIABETES MELLITUS
     Dosage: DAILY DOSE: 2.5/850 MG
     Route: 048
  2. CALTEO 40 [Concomitant]
     Indication: OSTEOPOROSIS
     Dosage: 1 ANZ
     Route: 048
     Dates: start: 20130430
  3. TWYNSTAR [Concomitant]
     Indication: HYPERTENSION
     Dosage: DAILY DOSE: 40/5 MG
     Route: 048
     Dates: start: 20130430
  4. GLADIEM [Concomitant]
     Indication: DIABETES MELLITUS
     Dosage: 2 MG
     Route: 048
     Dates: start: 20130305
  5. ITOMED [Concomitant]
     Indication: PROPHYLAXIS
     Dosage: 100 MG
     Route: 048
     Dates: start: 20130430
  6. VYTORIN [Concomitant]
     Indication: HYPERLIPIDAEMIA
     Dosage: DAILY DOSE: 10/20 MG
     Route: 048
     Dates: start: 20130430
  7. ANPRAN [Concomitant]
     Indication: DIABETIC NEUROPATHY
     Dosage: 200 MG
     Route: 048
     Dates: start: 20130430
  8. THIOCTACID HR [Concomitant]
     Indication: DIABETIC NEUROPATHY
     Dosage: 600 MG
     Route: 048
     Dates: start: 20130430
  9. ASTRIX [Concomitant]
     Indication: ANGINA PECTORIS
     Dosage: 100 MG
     Route: 048
     Dates: start: 20131125
  10. PLAVIX [Concomitant]
     Indication: ANGINA PECTORIS
     Dosage: 75 MG
     Route: 048
     Dates: start: 20131125
  11. SIGMART [Concomitant]
     Indication: ANGINA PECTORIS
     Dosage: 10 MG
     Route: 048
     Dates: start: 20131125

REACTIONS (1)
  - Angina pectoris [Recovered/Resolved]
